FAERS Safety Report 14853023 (Version 1)
Quarter: 2018Q2

REPORT INFORMATION
  Report Type: Report from Study
  Country: AR (occurrence: AR)
  Receive Date: 20180507
  Receipt Date: 20180507
  Transmission Date: 20180711
  Serious: Yes (Death, Hospitalization)
  Sender: FDA-Public Use
  Company Number: AR-ACTELION-A-CH2018-171547

PATIENT
  Age: 53 Year
  Sex: Female

DRUGS (1)
  1. OPSUMIT [Suspect]
     Active Substance: MACITENTAN
     Indication: PULMONARY ARTERIAL HYPERTENSION
     Dosage: UNK
     Route: 048
     Dates: start: 20171107

REACTIONS (4)
  - Right ventricular failure [Unknown]
  - Seizure [Unknown]
  - Multiple organ dysfunction syndrome [Fatal]
  - Concomitant disease aggravated [Unknown]

NARRATIVE: CASE EVENT DATE: 20180405
